FAERS Safety Report 8778927 (Version 2)
Quarter: 2012Q4

REPORT INFORMATION
  Report Type: 
  Country: US (occurrence: US)
  Receive Date: 20120912
  Receipt Date: 20121002
  Transmission Date: 20130627
  Serious: Yes (Other)
  Sender: FDA-Public Use
  Company Number: US-AMGEN-USASP2012037548

PATIENT
  Age: 51 Year
  Sex: Female
  Weight: 50.79 kg

DRUGS (6)
  1. ARANESP [Suspect]
     Indication: ANAEMIA
     Dosage: 300 mug, qwk
     Route: 058
     Dates: start: 20100120
  2. CELLCEPT                           /01275102/ [Concomitant]
     Indication: SYSTEMIC LUPUS ERYTHEMATOSUS
     Dosage: 500 UNK, bid
     Route: 048
     Dates: start: 20110712
  3. LABETALOL [Concomitant]
     Indication: HYPERTENSION
     Dosage: 200 UNK, qd
     Route: 048
     Dates: start: 20110206
  4. AMLODIPINE [Concomitant]
     Indication: HYPERTENSION
     Dosage: 10 UNK, qd
     Route: 048
     Dates: start: 20120530
  5. PREDNISOLONE [Concomitant]
     Dosage: 10 mg, UNK
  6. PREDNISOLONE [Concomitant]
     Dosage: UNK mg, UNK

REACTIONS (6)
  - Myelofibrosis [Unknown]
  - Myelodysplastic syndrome [Unknown]
  - Bone marrow failure [Unknown]
  - Marrow hyperplasia [Unknown]
  - Therapeutic response decreased [Not Recovered/Not Resolved]
  - Fatigue [Unknown]
